FAERS Safety Report 15671624 (Version 7)
Quarter: 2019Q3

REPORT INFORMATION
  Report Type: Report from Study
  Country: US (occurrence: US)
  Receive Date: 20181129
  Receipt Date: 20190920
  Transmission Date: 20191004
  Serious: Yes (Hospitalization, Other)
  Sender: FDA-Public Use
  Company Number: US-TESAROUBC-US-2018TSO04327

PATIENT
  Age: 67 Year
  Sex: Female
  Weight: 103 kg

DRUGS (9)
  1. CHLOROMYCETIN [Concomitant]
     Active Substance: CHLORAMPHENICOL
     Dosage: UNK
  2. HYDRALAZINE [Concomitant]
     Active Substance: HYDRALAZINE HYDROCHLORIDE
     Dosage: 50 MG, BID
     Route: 048
     Dates: start: 20180821
  3. CANNABIDIOL [Concomitant]
     Active Substance: CANNABIDIOL
     Dosage: UNK
  4. LOPRESSOR [Concomitant]
     Active Substance: METOPROLOL TARTRATE
     Dosage: UNK
     Dates: start: 20180821
  5. NIRAPARIB [Suspect]
     Active Substance: NIRAPARIB
     Dosage: 200 MG, QAM WITH FOOD
     Route: 048
     Dates: start: 20190903
  6. CRESTOR [Concomitant]
     Active Substance: ROSUVASTATIN CALCIUM
     Dosage: 20 MG, UNK
  7. NIRAPARIB [Suspect]
     Active Substance: NIRAPARIB
     Dosage: 200 MG, QD
     Route: 048
     Dates: start: 20180821
  8. BIOTIN [Concomitant]
     Active Substance: BIOTIN
     Dosage: UNK
  9. AMLODIPINE [Concomitant]
     Active Substance: AMLODIPINE BESYLATE
     Dosage: 5 MG, QD
     Route: 048
     Dates: start: 20180821

REACTIONS (23)
  - Erythema [Not Recovered/Not Resolved]
  - Constipation [Not Recovered/Not Resolved]
  - Headache [Recovering/Resolving]
  - Dizziness [Unknown]
  - Rash macular [Unknown]
  - Blood creatinine increased [Not Recovered/Not Resolved]
  - Tinnitus [Not Recovered/Not Resolved]
  - Hot flush [Unknown]
  - Blood urea increased [Unknown]
  - Feeling hot [Not Recovered/Not Resolved]
  - Sneezing [Not Recovered/Not Resolved]
  - Middle insomnia [Not Recovered/Not Resolved]
  - Insomnia [Unknown]
  - Hypertension [Recovered/Resolved]
  - Infection [Recovered/Resolved]
  - Neuropathy peripheral [Unknown]
  - Haemorrhage [Unknown]
  - C-reactive protein increased [Unknown]
  - Sleep disorder [Recovered/Resolved]
  - Blood glucose decreased [Unknown]
  - Paranasal sinus hypersecretion [Not Recovered/Not Resolved]
  - Red cell distribution width increased [Unknown]
  - Arthralgia [Unknown]

NARRATIVE: CASE EVENT DATE: 2018
